FAERS Safety Report 8688579 (Version 2)
Quarter: 2014Q1

REPORT INFORMATION
  Report Type: Spontaneous
  Country: US (occurrence: US)
  Receive Date: 20120727
  Receipt Date: 20140110
  Transmission Date: 20141002
  Serious: No
  Sender: FDA-Public Use
  Company Number: US-ASTRAZENECA-2011SE65417

PATIENT
  Age: 63 Year
  Sex: Female
  Weight: 73.5 kg

DRUGS (10)
  1. SEROQUEL XR [Suspect]
     Indication: SLEEP DISORDER
     Route: 048
  2. SEROQUEL XR [Suspect]
     Indication: MAJOR DEPRESSION
     Route: 048
  3. SEROQUEL XR [Suspect]
     Indication: SLEEP DISORDER
     Route: 048
     Dates: start: 2012, end: 201311
  4. SEROQUEL XR [Suspect]
     Indication: MAJOR DEPRESSION
     Route: 048
     Dates: start: 2012, end: 201311
  5. NEXIUM [Suspect]
     Indication: GASTROOESOPHAGEAL REFLUX DISEASE
     Route: 048
  6. LISINOPRIL/HCTZ [Suspect]
     Indication: HYPERTENSION
     Dosage: 20/25 MG, UNKNOWN
     Route: 048
     Dates: start: 2008
  7. PROZAC [Concomitant]
  8. ATORVASTATIN [Concomitant]
     Indication: BLOOD CHOLESTEROL ABNORMAL
  9. GENERIC XANAX [Concomitant]
     Indication: ANXIETY
  10. VITAMIN D [Concomitant]
     Indication: VITAMIN SUPPLEMENTATION

REACTIONS (5)
  - Thinking abnormal [Unknown]
  - Insomnia [Unknown]
  - Drug dose omission [Unknown]
  - Off label use [Unknown]
  - Intentional drug misuse [Unknown]
